FAERS Safety Report 11595410 (Version 1)
Quarter: 2015Q4

REPORT INFORMATION
  Report Type: Spontaneous
  Country: US (occurrence: None)
  Receive Date: 20151005
  Receipt Date: 20151005
  Transmission Date: 20160304
  Serious: Yes (Death, Hospitalization)
  Sender: FDA-Public Use
  Company Number: None

PATIENT
  Age: 69 Year
  Sex: Female
  Weight: 77.11 kg

DRUGS (24)
  1. IBUPROFEN. [Concomitant]
     Active Substance: IBUPROFEN
  2. ERYTHROMYCIN EYE OINTMENT [Concomitant]
     Active Substance: ERYTHROMYCIN
  3. PROBIOTIC [Concomitant]
     Active Substance: PROBIOTICS NOS
  4. VITAMIN C [Concomitant]
     Active Substance: ASCORBIC ACID
  5. ONDANSETRON [Concomitant]
     Active Substance: ONDANSETRON
  6. IMODIUM [Concomitant]
     Active Substance: LOPERAMIDE HYDROCHLORIDE
  7. VITAMIN B12 [Concomitant]
     Active Substance: CYANOCOBALAMIN
  8. ZINC [Concomitant]
     Active Substance: ZINC\ZINC CHLORIDE
  9. XGEVA [Concomitant]
     Active Substance: DENOSUMAB
  10. FISH OIL [Concomitant]
     Active Substance: FISH OIL
  11. LORAZEPAM. [Concomitant]
     Active Substance: LORAZEPAM
  12. FUROSEMIDE. [Concomitant]
     Active Substance: FUROSEMIDE
  13. DOCETAXOL [Suspect]
     Active Substance: DOCETAXEL
     Indication: BREAST CANCER METASTATIC
     Route: 042
     Dates: start: 20150729, end: 20150820
  14. HYDROCODONE/APAP [Concomitant]
     Active Substance: ACETAMINOPHEN\HYDROCODONE BITARTRATE
  15. LORATIDINE [Concomitant]
     Active Substance: LORATADINE
  16. COMPAZINE [Concomitant]
     Active Substance: PROCHLORPERAZINE MALEATE
  17. ACYCLOVIR. [Concomitant]
     Active Substance: ACYCLOVIR
  18. CYCLOPHOSPHAMIDE. [Suspect]
     Active Substance: CYCLOPHOSPHAMIDE
     Indication: BREAST CANCER METASTATIC
     Route: 042
     Dates: start: 20150729, end: 20150820
  19. PREVACID [Concomitant]
     Active Substance: LANSOPRAZOLE
  20. TEMASEPAM [Concomitant]
  21. FLUCONAZOLE. [Concomitant]
     Active Substance: FLUCONAZOLE
  22. MVI W/IRON [Concomitant]
  23. ASPIRIN 81 MG [Concomitant]
     Active Substance: ASPIRIN
  24. SPIRONOLACTONE. [Concomitant]
     Active Substance: SPIRONOLACTONE

REACTIONS (12)
  - Dehydration [None]
  - Inflammation [None]
  - Mouth ulceration [None]
  - Erythema [None]
  - Respiratory failure [None]
  - Multi-organ failure [None]
  - Diarrhoea [None]
  - Conjunctivitis [None]
  - Skin exfoliation [None]
  - Ascites [None]
  - Mucous membrane disorder [None]
  - Skin lesion [None]

NARRATIVE: CASE EVENT DATE: 20150831
